FAERS Safety Report 4354375-2 (Version None)
Quarter: 2004Q2

REPORT INFORMATION
  Report Type: 
  Country: None (occurrence: None)
  Receive Date: 20040506
  Receipt Date: 20040414
  Transmission Date: 20050107
  Serious: Yes (Disabling)
  Sender: FDA-Public Use
  Company Number: US-MERCK-0404USA01472

PATIENT
  Age: 84 Year
  Sex: Female
  Weight: 57 kg

DRUGS (2)
  1. VIOXX [Suspect]
     Indication: CARPAL TUNNEL SYNDROME
     Route: 048
     Dates: start: 20040308, end: 20040408
  2. VIOXX [Suspect]
     Route: 048
     Dates: start: 20031203, end: 20040307

REACTIONS (2)
  - OEDEMA PERIPHERAL [None]
  - POLYARTHRITIS [None]
